FAERS Safety Report 10934633 (Version 1)
Quarter: 2015Q1

REPORT INFORMATION
  Report Type: Spontaneous
  Country: FR (occurrence: FR)
  Receive Date: 20150320
  Receipt Date: 20150320
  Transmission Date: 20150721
  Serious: Yes (Death, Hospitalization)
  Sender: FDA-Public Use
  Company Number: FR-JNJFOC-20150307540

PATIENT
  Age: 88 Year
  Sex: Male

DRUGS (8)
  1. EPITOMAX [Suspect]
     Active Substance: TOPIRAMATE
     Indication: COGNITIVE DISORDER
     Route: 065
  2. FORLAX [Concomitant]
     Active Substance: POLYETHYLENE GLYCOL 4000
     Route: 065
  3. EBIXA [Concomitant]
     Active Substance: MEMANTINE HYDROCHLORIDE
     Route: 065
  4. AMYCOR [Concomitant]
     Active Substance: BIFONAZOLE
     Route: 065
  5. TAHOR [Concomitant]
     Active Substance: ATORVASTATIN CALCIUM
     Route: 065
  6. ADANCOR [Concomitant]
     Active Substance: NICORANDIL
     Route: 065
  7. DAFALGAN [Concomitant]
     Active Substance: ACETAMINOPHEN
     Route: 065
  8. MECIR [Concomitant]
     Active Substance: TAMSULOSIN HYDROCHLORIDE
     Route: 065

REACTIONS (11)
  - Dehydration [Unknown]
  - Hyperglycaemia [Unknown]
  - Coma [Unknown]
  - Renal impairment [Unknown]
  - Lung disorder [Unknown]
  - Hypotension [Unknown]
  - Hypernatraemia [Unknown]
  - Respiratory distress [Fatal]
  - Somnolence [Fatal]
  - General physical health deterioration [Unknown]
  - Product use issue [Unknown]

NARRATIVE: CASE EVENT DATE: 20150217
